FAERS Safety Report 19728837 (Version 1)
Quarter: 2021Q3

REPORT INFORMATION
  Report Type: Spontaneous
  Country: CN (occurrence: CN)
  Receive Date: 20210820
  Receipt Date: 20210820
  Transmission Date: 20211014
  Serious: Yes (Other)
  Sender: FDA-Public Use
  Company Number: CN-PFIZER INC-202101035742

PATIENT
  Age: 55 Year
  Sex: Male
  Weight: 70 kg

DRUGS (3)
  1. CYTOSAR [Suspect]
     Active Substance: CYTARABINE
     Indication: MYELODYSPLASTIC SYNDROME
     Dosage: 0.02 G, 2X/DAY
     Route: 058
     Dates: start: 20210725, end: 20210803
  2. AZACITIDINE. [Concomitant]
     Active Substance: AZACITIDINE
     Dosage: UNK
     Dates: start: 20210725
  3. HOMOHARRINGTONINE [Suspect]
     Active Substance: OMACETAXINE MEPESUCCINATE
     Indication: MYELODYSPLASTIC SYNDROME
     Dosage: 1 MG, 1X/DAY
     Dates: start: 20210725, end: 20210803

REACTIONS (4)
  - Vomiting [Recovering/Resolving]
  - Abdominal discomfort [Recovering/Resolving]
  - Headache [Unknown]
  - Nausea [Recovering/Resolving]

NARRATIVE: CASE EVENT DATE: 20210725
